FAERS Safety Report 10022004 (Version 1)
Quarter: 2014Q1

REPORT INFORMATION
  Report Type: Spontaneous
  Country: US (occurrence: None)
  Receive Date: 20140318
  Receipt Date: 20140318
  Transmission Date: 20141002
  Serious: Yes (Other)
  Sender: FDA-Public Use
  Company Number: None

PATIENT
  Age: 64 Year
  Sex: Female
  Weight: 57.15 kg

DRUGS (8)
  1. DOCETAXEL [Suspect]
     Indication: LUNG CANCER METASTATIC
     Dates: start: 20140306, end: 20140306
  2. MEDLIZINE PO PRN [Concomitant]
  3. CELEXA 40 MG [Concomitant]
  4. AMBIEN 10 MGPO PRN [Concomitant]
  5. MORPHINE 15 MG PO PRN [Concomitant]
  6. VICODIN [Concomitant]
  7. SYNTHROID [Concomitant]
  8. OMEPRAZOLE [Concomitant]

REACTIONS (3)
  - Myalgia [None]
  - Bedridden [None]
  - Neutrophil count decreased [None]
